FAERS Safety Report 9306986 (Version 4)
Quarter: 2013Q3

REPORT INFORMATION
  Report Type: Spontaneous
  Country: US (occurrence: US)
  Receive Date: 20130523
  Receipt Date: 20130718
  Transmission Date: 20140515
  Serious: Yes (Death, Hospitalization)
  Sender: FDA-Public Use
  Company Number: US-BAYER-2013-063889

PATIENT
  Age: 73 Year
  Sex: Male
  Weight: 61.69 kg

DRUGS (4)
  1. XARELTO [Suspect]
     Indication: CEREBROVASCULAR ACCIDENT PROPHYLAXIS
     Dosage: 20 MG, QD
     Route: 048
     Dates: start: 201304, end: 20130428
  2. XARELTO [Interacting]
     Indication: ATRIAL FIBRILLATION
  3. ACETYLSALICYLIC ACID({=100 MG) [Interacting]
     Indication: PRODUCT USED FOR UNKNOWN INDICATION
     Dosage: 81 MG, UNK
     Route: 065
  4. LOVENOX [Interacting]
     Dosage: 40 MG, UNK
     Route: 058
     Dates: start: 20130426, end: 20130427

REACTIONS (3)
  - Gastrointestinal haemorrhage [Fatal]
  - Haemoglobin decreased [None]
  - Haematocrit decreased [None]
